FAERS Safety Report 4865917-2 (Version None)
Quarter: 2005Q4

REPORT INFORMATION
  Report Type: 
  Country: None (occurrence: None)
  Receive Date: 20051226
  Receipt Date: 20051219
  Transmission Date: 20060501
  Serious: Yes (Disabling, Other)
  Sender: FDA-Public Use
  Company Number: PHFR2005GB04111

PATIENT
  Age: 45 Year
  Sex: Male

DRUGS (1)
  1. TERBINAFINE [Suspect]
     Indication: ONYCHOGRYPHOSIS
     Dosage: 250 MG, QD
     Route: 048
     Dates: start: 20050901, end: 20051025

REACTIONS (1)
  - ERECTILE DYSFUNCTION [None]
